FAERS Safety Report 5782049-X (Version None)
Quarter: 2008Q2

REPORT INFORMATION
  Report Type: 
  Country: None (occurrence: None)
  Receive Date: 20080623
  Receipt Date: 20080617
  Transmission Date: 20081010
  Serious: Yes (Life-Threatening, Hospitalization)
  Sender: FDA-Public Use
  Company Number: FR-ASTRAZENECA-2008CG00956

PATIENT
  Sex: Male

DRUGS (4)
  1. DIPRIVAN [Suspect]
     Indication: GENERAL ANAESTHESIA
     Route: 042
     Dates: start: 20080617, end: 20080617
  2. KETAMINE HCL [Concomitant]
     Indication: SEDATION
  3. MORPHINE [Concomitant]
     Indication: GENERAL ANAESTHESIA
  4. CURARE [Concomitant]
     Indication: GENERAL ANAESTHESIA

REACTIONS (2)
  - DEVICE FAILURE [None]
  - VENTRICULAR TACHYCARDIA [None]
